FAERS Safety Report 23669418 (Version 1)
Quarter: 2024Q1

REPORT INFORMATION
  Report Type: Spontaneous
  Country: US (occurrence: None)
  Receive Date: 20240324
  Receipt Date: 20240324
  Transmission Date: 20240410
  Serious: Yes (Hospitalization, Other)
  Sender: FDA-Public Use
  Company Number: None

PATIENT
  Age: 81 Year
  Sex: Male
  Weight: 65 kg

DRUGS (1)
  1. DESMOPRESSIN ACETATE [Suspect]
     Active Substance: DESMOPRESSIN ACETATE
     Indication: Hyponatraemia
     Dosage: OTHER FREQUENCY : OVER FIVE DOSES;?
     Route: 040
     Dates: start: 20240214, end: 20240215

REACTIONS (1)
  - Inappropriate antidiuretic hormone secretion [None]

NARRATIVE: CASE EVENT DATE: 20240215
